FAERS Safety Report 9957742 (Version 1)
Quarter: 2014Q1

REPORT INFORMATION
  Report Type: Report from Study
  Country: US (occurrence: US)
  Receive Date: 20140304
  Receipt Date: 20140304
  Transmission Date: 20141002
  Serious: No
  Sender: FDA-Public Use
  Company Number: US-ABBVIE-13P-163-1096208-00

PATIENT
  Age: 26 Year
  Sex: Male

DRUGS (5)
  1. HUMIRA [Suspect]
     Indication: CROHN^S DISEASE
     Dates: start: 20121124
  2. HUMIRA [Suspect]
  3. ATIVAN [Concomitant]
     Indication: BIPOLAR I DISORDER
     Dosage: 2MG DAILY
  4. WELLBUTRIN [Concomitant]
     Indication: BIPOLAR I DISORDER
  5. ADDERALL [Concomitant]
     Indication: ATTENTION DEFICIT/HYPERACTIVITY DISORDER
     Dosage: 20MG DAILY WHILE IN SCHOOL

REACTIONS (4)
  - Diarrhoea [Recovering/Resolving]
  - Haematochezia [Recovering/Resolving]
  - Drug ineffective [Recovering/Resolving]
  - Crohn^s disease [Recovering/Resolving]
